FAERS Safety Report 18799475 (Version 1)
Quarter: 2021Q1

REPORT INFORMATION
  Report Type: Spontaneous
  Country: GB (occurrence: GB)
  Receive Date: 20210128
  Receipt Date: 20210128
  Transmission Date: 20210419
  Serious: Yes (Other)
  Sender: FDA-Public Use
  Company Number: GB-MYLANLABS-2021M1003801

PATIENT
  Age: 42 Year
  Sex: Female
  Weight: 97 kg

DRUGS (6)
  1. GABAPENTIN. [Concomitant]
     Active Substance: GABAPENTIN
     Indication: NEURALGIA
     Dosage: 2 DOSAGE FORM, TID
     Dates: start: 20201124, end: 20201222
  2. OTOMIZE [Concomitant]
     Dosage: 3 GTT DROPS, TID, DROPS
     Dates: start: 20201026, end: 20201109
  3. CIPROFLOXACIN. [Suspect]
     Active Substance: CIPROFLOXACIN
     Indication: PRODUCT USED FOR UNKNOWN INDICATION
     Dosage: 500 MILLIGRAM, BID
     Dates: start: 20201231
  4. GENTAMICIN. [Concomitant]
     Active Substance: GENTAMICIN
     Dosage: USE AS DIRECTED
     Dates: start: 20201207, end: 20201212
  5. CO?AMOXICLAV                       /00756801/ [Concomitant]
     Active Substance: AMOXICILLIN\CLAVULANIC ACID
     Dosage: 1 DOSAGE FORM, TID
     Dates: start: 20201207, end: 20201214
  6. FLUCLOXACILLIN [Concomitant]
     Active Substance: FLUCLOXACILLIN
     Dosage: 1 DOSAGE FORM, QID, ANTIBIOTIC
     Dates: start: 20201222

REACTIONS (5)
  - Rash [Unknown]
  - Wheezing [Recovered/Resolved]
  - Swelling [Recovered/Resolved]
  - Swelling face [Recovered/Resolved]
  - Dyspnoea [Unknown]

NARRATIVE: CASE EVENT DATE: 20210104
